FAERS Safety Report 22257388 (Version 2)
Quarter: 2023Q2

REPORT INFORMATION
  Report Type: Spontaneous
  Country: RU (occurrence: RU)
  Receive Date: 20230427
  Receipt Date: 20230505
  Transmission Date: 20230722
  Serious: Yes (Life-Threatening, Hospitalization, Other)
  Sender: FDA-Public Use
  Company Number: RU-TAKEDA-2023TUS041864

PATIENT
  Age: 51 Year
  Sex: Male
  Weight: 104 kg

DRUGS (6)
  1. ADYNOVATE [Suspect]
     Active Substance: ANTIHEMOPHILIC FACTOR, HUMAN RECOMBINANT
     Indication: Haemophilia
     Dosage: 4000 INTERNATIONAL UNIT, 3/WEEK
     Route: 042
     Dates: start: 202211
  2. ADYNOVATE [Suspect]
     Active Substance: ANTIHEMOPHILIC FACTOR, HUMAN RECOMBINANT
     Indication: Haemophilia
     Dosage: 4000 INTERNATIONAL UNIT, 3/WEEK
     Route: 042
     Dates: start: 202211
  3. ADYNOVATE [Suspect]
     Active Substance: ANTIHEMOPHILIC FACTOR, HUMAN RECOMBINANT
     Indication: Haemophilia
     Dosage: 4000 INTERNATIONAL UNIT, 3/WEEK
     Route: 042
     Dates: start: 202211
  4. ADYNOVATE [Suspect]
     Active Substance: ANTIHEMOPHILIC FACTOR, HUMAN RECOMBINANT
     Dosage: 4000 INTERNATIONAL UNIT, 2/WEEK
     Route: 042
     Dates: start: 202212
  5. ADYNOVATE [Suspect]
     Active Substance: ANTIHEMOPHILIC FACTOR, HUMAN RECOMBINANT
     Dosage: 4000 INTERNATIONAL UNIT, 2/WEEK
     Route: 042
     Dates: start: 202212
  6. ADYNOVATE [Suspect]
     Active Substance: ANTIHEMOPHILIC FACTOR, HUMAN RECOMBINANT
     Dosage: 4000 INTERNATIONAL UNIT, 2/WEEK
     Route: 042
     Dates: start: 202212

REACTIONS (2)
  - Gastrointestinal haemorrhage [Recovered/Resolved with Sequelae]
  - Peptic ulcer haemorrhage [Not Recovered/Not Resolved]

NARRATIVE: CASE EVENT DATE: 20230412
